FAERS Safety Report 20752096 (Version 2)
Quarter: 2022Q2

REPORT INFORMATION
  Report Type: Report from Study
  Country: MX (occurrence: MX)
  Receive Date: 20220426
  Receipt Date: 20220429
  Transmission Date: 20220720
  Serious: Yes (Life-Threatening, Other)
  Sender: FDA-Public Use
  Company Number: MX-NOVARTISPH-NVSC2022MX095768

PATIENT
  Sex: Male
  Weight: 94 kg

DRUGS (3)
  1. TASIGNA [Suspect]
     Active Substance: NILOTINIB
     Indication: Chronic myeloid leukaemia
     Dosage: 800 MG, QD (EVERY 24 HOURS)
     Route: 048
     Dates: start: 202001
  2. IMATINIB [Suspect]
     Active Substance: IMATINIB
     Indication: Chronic myeloid leukaemia
     Dosage: 400 MG, QD (EVERY 24 HOURS)
     Route: 048
  3. INTERFERON [Concomitant]
     Active Substance: INTERFERON
     Indication: Product used for unknown indication
     Dosage: 90 UG, QW
     Route: 065

REACTIONS (11)
  - Alanine aminotransferase abnormal [Unknown]
  - Aspartate aminotransferase abnormal [Unknown]
  - Gamma-glutamyltransferase abnormal [Unknown]
  - Drug ineffective [Not Recovered/Not Resolved]
  - Haemoglobin abnormal [Unknown]
  - Monocyte count abnormal [Unknown]
  - Blood uric acid abnormal [Unknown]
  - Body temperature abnormal [Unknown]
  - Blood lactate dehydrogenase abnormal [Unknown]
  - Laboratory test abnormal [Unknown]
  - Inappropriate schedule of product administration [Unknown]
